FAERS Safety Report 23235191 (Version 2)
Quarter: 2023Q4

REPORT INFORMATION
  Report Type: Spontaneous
  Country: US (occurrence: US)
  Receive Date: 20231128
  Receipt Date: 20231129
  Transmission Date: 20240110
  Serious: No
  Sender: FDA-Public Use
  Company Number: US-PFIZER INC-2021182474

PATIENT
  Age: 42 Year
  Sex: Female

DRUGS (1)
  1. LORBRENA [Suspect]
     Active Substance: LORLATINIB
     Dosage: 100 MG

REACTIONS (4)
  - Intentional product misuse [Unknown]
  - Neoplasm progression [Unknown]
  - Impaired work ability [Unknown]
  - Nervous system disorder [Unknown]
